FAERS Safety Report 6181353-3 (Version None)
Quarter: 2009Q2

REPORT INFORMATION
  Report Type: 
  Country: None (occurrence: None)
  Receive Date: 20090506
  Receipt Date: 20090428
  Transmission Date: 20091009
  Serious: Yes (Disabling)
  Sender: FDA-Public Use
  Company Number: DK-B.I. PHARMACEUTICALS,INC./RIDGEFIELD-2008-SW-00214DB

PATIENT
  Sex: Male
  Weight: 91 kg

DRUGS (5)
  1. PERSANTINE [Suspect]
     Dosage: COATED TABLETS
     Route: 048
  2. MYOVIEW [Suspect]
     Indication: SCINTIGRAPHY
     Dosage: 600-700MBQ
     Route: 042
     Dates: start: 20080205, end: 20080205
  3. LIPITOR [Concomitant]
  4. METFORMIN HCL [Concomitant]
  5. HJERTEMAGNYL [Concomitant]

REACTIONS (2)
  - BLOOD PRESSURE DECREASED [None]
  - TINNITUS [None]
